FAERS Safety Report 8784580 (Version 3)
Quarter: 2013Q1

REPORT INFORMATION
  Report Type: Spontaneous
  Country: US (occurrence: None)
  Receive Date: 20120830
  Receipt Date: 20121226
  Transmission Date: 20140127
  Serious: Yes (Other)
  Sender: FDA-Public Use
  Company Number: JPI-P-024128

PATIENT
  Age: 54 Year
  Sex: Male

DRUGS (4)
  1. XYREM [Suspect]
     Indication: SLEEP APNOEA SYNDROME
     Dosage: 6GMS (3 GMS 2 IN ID)
     Route: 048
     Dates: start: 20070917
  2. XYREM [Suspect]
     Indication: CATAPLEXY
     Dosage: 6GMS (3 GMS 2 IN ID)
     Route: 048
     Dates: start: 20070917
  3. LOSARTAN [Concomitant]
  4. CLONAZEPAM [Concomitant]

REACTIONS (1)
  - Plasma cell myeloma [None]
